FAERS Safety Report 8777115 (Version 1)
Quarter: 2012Q4

REPORT INFORMATION
  Report Type: 
  Country: IT (occurrence: IT)
  Receive Date: 20120911
  Receipt Date: 20120911
  Transmission Date: 20130627
  Serious: Yes (Death, Other)
  Sender: FDA-Public Use
  Company Number: IT-CELGENEUS-083-21880-12090022

PATIENT

DRUGS (7)
  1. REVLIMID [Suspect]
     Indication: MULTIPLE MYELOMA
     Dosage: 15 Milligram
     Route: 048
  2. REVLIMID [Suspect]
     Dosage: 20 Milligram
     Route: 048
  3. REVLIMID [Suspect]
     Dosage: 25 Milligram
     Route: 048
  4. DEXAMETHASONE [Suspect]
     Indication: MULTIPLE MYELOMA
     Dosage: 40 Milligram
     Route: 065
  5. BENDAMUSTINE [Suspect]
     Indication: MULTIPLE MYELOMA
     Route: 041
  6. BENDAMUSTINE [Suspect]
     Route: 041
  7. BENDAMUSTINE [Suspect]
     Route: 041

REACTIONS (14)
  - Myocardial ischaemia [Fatal]
  - Central nervous system haemorrhage [Fatal]
  - Haematotoxicity [Fatal]
  - Febrile neutropenia [Unknown]
  - Anaemia [Unknown]
  - Neutropenia [Unknown]
  - Thrombocytopenia [Unknown]
  - Bronchopneumonia [Unknown]
  - Renal impairment [Unknown]
  - Adverse event [Unknown]
  - Gastrointestinal disorder [Unknown]
  - Infection [Unknown]
  - Rash [Unknown]
  - Pyrexia [Unknown]
